FAERS Safety Report 9500741 (Version 1)
Quarter: 2013Q1

REPORT INFORMATION
  Report Type: Spontaneous
  Country: US (occurrence: None)
  Receive Date: 20130107
  Receipt Date: 20130107
  Transmission Date: 20140127
  Serious: No
  Sender: FDA-Public Use
  Company Number: PHEH2012US018478

PATIENT
  Age: 35 Year
  Sex: Male

DRUGS (4)
  1. GILENYA (FTY) CAPSULE, 0.5MG [Suspect]
     Indication: MULTIPLE SCLEROSIS
     Route: 048
     Dates: start: 20120418
  2. AMITRIPTYLINE (AMITRIPTYLINE) [Concomitant]
  3. ERGOCALCIFEROL (ERGOCALCIFEROL) [Concomitant]
  4. AMANTADINE (AMANTADINE) [Concomitant]

REACTIONS (2)
  - Rash [None]
  - Contusion [None]
